FAERS Safety Report 9693854 (Version 1)
Quarter: 2013Q4

REPORT INFORMATION
  Report Type: Spontaneous
  Country: US (occurrence: US)
  Receive Date: 20131118
  Receipt Date: 20131118
  Transmission Date: 20140711
  Serious: Yes (Other)
  Sender: FDA-Public Use
  Company Number: CHPA2013US017195

PATIENT
  Sex: Male

DRUGS (1)
  1. MAALOX ANTACID/ANTIGAS MAX QDTABS UNKNOW [Suspect]
     Indication: GASTROENTERITIS VIRAL
     Dosage: UNK, UNK
     Route: 048

REACTIONS (2)
  - Dehydration [Unknown]
  - Gastroenteritis viral [Unknown]
